FAERS Safety Report 7784993-0 (Version None)
Quarter: 2011Q3

REPORT INFORMATION
  Report Type: 
  Country: None (occurrence: None)
  Receive Date: 20110928
  Receipt Date: 20110921
  Transmission Date: 20111222
  Serious: Yes (Hospitalization)
  Sender: FDA-Public Use
  Company Number: PHHY2011AR84178

PATIENT
  Sex: Male

DRUGS (1)
  1. ONBREZ [Suspect]

REACTIONS (1)
  - LUNG INFECTION [None]
